FAERS Safety Report 5449546-8 (Version None)
Quarter: 2007Q3

REPORT INFORMATION
  Report Type: 
  Country: None (occurrence: None)
  Receive Date: 20070907
  Receipt Date: 20070829
  Transmission Date: 20080115
  Serious: Yes (Hospitalization)
  Sender: FDA-Public Use
  Company Number: 2007-04001

PATIENT
  Age: 59 Year
  Sex: Female
  Weight: 96.1 kg

DRUGS (5)
  1. LORAZEPAM [Suspect]
     Indication: ANXIETY
     Dosage: 0.5 TABLET, TID, ORAL; 0.5 TABLET, QID, ORAL
     Route: 048
     Dates: start: 20070809, end: 20070828
  2. LORAZEPAM [Suspect]
     Indication: ANXIETY
     Dosage: 0.5 TABLET, TID, ORAL; 0.5 TABLET, QID, ORAL
     Route: 048
     Dates: start: 20070829
  3. REMERON [Concomitant]
  4. SEROQUEL [Concomitant]
  5. COGENTIN [Concomitant]

REACTIONS (6)
  - ANXIETY [None]
  - DRUG INEFFECTIVE [None]
  - DRUG SCREEN NEGATIVE [None]
  - MAJOR DEPRESSION [None]
  - STRESS [None]
  - SUICIDAL IDEATION [None]
